FAERS Safety Report 9118025 (Version 7)
Quarter: 2013Q4

REPORT INFORMATION
  Report Type: Report from Study
  Country: BR (occurrence: BR)
  Receive Date: 20130128
  Receipt Date: 20131129
  Transmission Date: 20140711
  Serious: Yes (Hospitalization, Other)
  Sender: FDA-Public Use
  Company Number: BR-ROCHE-751521

PATIENT
  Age: 64 Year
  Sex: Female
  Weight: 87 kg

DRUGS (15)
  1. ACTEMRA [Suspect]
     Indication: RHEUMATOID ARTHRITIS
     Route: 065
     Dates: start: 20130104, end: 201302
  2. ACTEMRA [Suspect]
     Route: 065
  3. MABTHERA [Suspect]
     Indication: RHEUMATOID ARTHRITIS
     Dosage: ROUTE: ENDOVENOUS; FORM: INFUSION
     Route: 042
  4. MABTHERA [Suspect]
     Route: 065
     Dates: start: 20100501, end: 20120301
  5. METFORMIN [Concomitant]
     Indication: DIABETES MELLITUS
  6. AMLODIPIN [Concomitant]
     Indication: HYPERTENSION
  7. HYDROCHLOROTHIAZIDE [Concomitant]
     Route: 065
  8. LOSARTAN [Concomitant]
     Route: 065
  9. OSTEONUTRI [Concomitant]
  10. CITALOPRAM [Concomitant]
     Route: 065
  11. PREDNISONE [Concomitant]
     Route: 065
  12. SIMVASTATIN [Concomitant]
     Indication: HYPERCHOLESTEROLAEMIA
  13. OMEPRAZOLE [Concomitant]
  14. HYDROCHLOROTHIAZIDE [Concomitant]
  15. AAS [Concomitant]

REACTIONS (36)
  - Herpes zoster [Recovered/Resolved]
  - Pneumonia [Recovered/Resolved]
  - Hepatitis [Unknown]
  - Cyst [Not Recovered/Not Resolved]
  - Urinary tract infection [Recovered/Resolved]
  - Intraocular pressure test abnormal [Recovering/Resolving]
  - Anaemia [Recovered/Resolved]
  - Decreased immune responsiveness [Recovered/Resolved]
  - Herpes zoster [Recovered/Resolved]
  - Back pain [Recovered/Resolved]
  - Weight decreased [Recovering/Resolving]
  - Fatigue [Unknown]
  - Palpitations [Unknown]
  - Pain in extremity [Not Recovered/Not Resolved]
  - Pain in extremity [Not Recovered/Not Resolved]
  - Pain in extremity [Unknown]
  - Drug ineffective [Unknown]
  - Influenza [Recovered/Resolved]
  - Hypertension [Recovered/Resolved]
  - Diabetes mellitus [Unknown]
  - Blood cholesterol increased [Unknown]
  - Arthralgia [Not Recovered/Not Resolved]
  - Liver disorder [Recovered/Resolved]
  - Blood pressure fluctuation [Recovered/Resolved]
  - Vitamin B12 deficiency [Recovered/Resolved]
  - Vitamin D deficiency [Recovered/Resolved]
  - Dizziness [Recovered/Resolved]
  - Eating disorder [Recovered/Resolved]
  - Dysgeusia [Recovered/Resolved]
  - Pain [Recovering/Resolving]
  - Influenza [Recovered/Resolved]
  - Eye pain [Recovering/Resolving]
  - Headache [Not Recovered/Not Resolved]
  - Vertigo [Recovering/Resolving]
  - Abdominal discomfort [Recovering/Resolving]
  - Gastrointestinal disorder [Recovering/Resolving]
